FAERS Safety Report 7484849-7 (Version None)
Quarter: 2011Q2

REPORT INFORMATION
  Report Type: 
  Country: None (occurrence: None)
  Receive Date: 20110517
  Receipt Date: 20110510
  Transmission Date: 20111010
  Serious: Yes (Life-Threatening, Hospitalization)
  Sender: FDA-Public Use
  Company Number: FR-ROCHE-772861

PATIENT
  Age: 79 Year
  Sex: Female

DRUGS (6)
  1. HYZAAR [Concomitant]
  2. OMEPRAZOLE [Concomitant]
  3. ASPIRIN [Concomitant]
  4. ACEBUTOLOL [Concomitant]
  5. ATORVASTATIN CALCIUM [Concomitant]
  6. XELODA [Suspect]
     Route: 065
     Dates: start: 20110214, end: 20110302

REACTIONS (6)
  - COLITIS [None]
  - SEPTIC SHOCK [None]
  - HAEMOLYTIC ANAEMIA [None]
  - RENAL FAILURE [None]
  - PANCYTOPENIA [None]
  - DIARRHOEA [None]
